FAERS Safety Report 5755632-5 (Version None)
Quarter: 2008Q2

REPORT INFORMATION
  Report Type: 
  Country: None (occurrence: None)
  Receive Date: 20080602
  Receipt Date: 20080522
  Transmission Date: 20081010
  Serious: Yes (Death, Hospitalization)
  Sender: FDA-Public Use
  Company Number: BE-ROCHE-546092

PATIENT
  Sex: Male
  Weight: 86 kg

DRUGS (15)
  1. PEGASYS [Suspect]
     Route: 058
     Dates: start: 20070405, end: 20080201
  2. PEGASYS [Suspect]
     Dosage: PRIOR TO STUDY.
     Route: 058
  3. PEGASYS [Suspect]
     Dosage: STARTED AFTER TRANSPLANT
     Route: 058
  4. CYCLOSPORINE [Suspect]
     Route: 065
  5. COPEGUS [Concomitant]
     Dosage: PRIOR TO ENTRY ON THE STUDY.
  6. COPEGUS [Concomitant]
     Dosage: STARTED AFTER TRANSPLANT.
  7. TENOFOVIR [Concomitant]
     Dates: start: 20061011
  8. EMTRICITABINE [Concomitant]
     Dates: start: 20061011
  9. RITONAVIR [Concomitant]
     Dates: start: 20061011
  10. ATAZANAVIR SULFATE [Concomitant]
     Dates: start: 20061011
  11. LASIX [Concomitant]
     Dates: start: 20070302, end: 20080205
  12. SIPRALEXA [Concomitant]
     Dates: start: 20070301
  13. ZOLPIDEM TARTRATE [Concomitant]
     Dates: start: 20060401
  14. ALDACTONE [Concomitant]
     Dates: start: 20061104, end: 20080205
  15. INDERAL [Concomitant]
     Dates: start: 20061104, end: 20080205

REACTIONS (4)
  - ASPERGILLOSIS [None]
  - ENCEPHALOPATHY [None]
  - HEPATIC CIRRHOSIS [None]
  - SEPTIC SHOCK [None]
